FAERS Safety Report 15246492 (Version 2)
Quarter: 2018Q3

REPORT INFORMATION
  Report Type: Spontaneous
  Country: HU (occurrence: HU)
  Receive Date: 20180806
  Receipt Date: 20180928
  Transmission Date: 20181010
  Serious: Yes (Other)
  Sender: FDA-Public Use
  Company Number: HU-MYLANLABS-2018M1057935

PATIENT
  Age: 15 Year
  Sex: Female

DRUGS (9)
  1. AZATHIOPRINE. [Suspect]
     Active Substance: AZATHIOPRINE
     Indication: PEMPHIGUS
     Dosage: UNK
     Route: 048
  2. RITUXIMAB. [Suspect]
     Active Substance: RITUXIMAB
     Indication: PEMPHIGUS
     Dosage: 475 MG/M2, UNK (4 TREATMENT ON WEEKLY BASIS)
     Route: 051
  3. METHYLPREDNISOLONE. [Concomitant]
     Active Substance: METHYLPREDNISOLONE
     Indication: PEMPHIGUS
     Dosage: 2 MG/KG, QD
     Route: 065
  4. RITUXIMAB. [Suspect]
     Active Substance: RITUXIMAB
     Dosage: 375 MG/M2, QW
     Route: 051
  5. METHYLPREDNISOLONE. [Suspect]
     Active Substance: METHYLPREDNISOLONE
     Dosage: UNK
     Route: 065
  6. RITUXIMAB. [Suspect]
     Active Substance: RITUXIMAB
     Indication: PEMPHIGUS
     Dosage: UNK
  7. METHYLPREDNISOLONE. [Suspect]
     Active Substance: METHYLPREDNISOLONE
     Indication: PEMPHIGUS
     Dosage: UNK
     Route: 065
  8. METHYLPREDNISOLONE. [Suspect]
     Active Substance: METHYLPREDNISOLONE
     Dosage: UNK
  9. AZATHIOPRINE. [Suspect]
     Active Substance: AZATHIOPRINE
     Indication: PEMPHIGUS
     Dosage: 2 MG/KG, QD
     Route: 065

REACTIONS (13)
  - Staphylococcal infection [Recovered/Resolved]
  - Acne [Recovered/Resolved]
  - Superinfection [Recovered/Resolved]
  - Pemphigus [Unknown]
  - Hyperpyrexia [Recovered/Resolved]
  - Product use in unapproved indication [Unknown]
  - Localised infection [Recovered/Resolved]
  - Condition aggravated [Unknown]
  - Drug ineffective [Recovered/Resolved]
  - Haematochezia [Recovered/Resolved]
  - Therapeutic response decreased [Unknown]
  - Enterobacter infection [Recovered/Resolved]
  - Candiduria [Recovered/Resolved]
